FAERS Safety Report 12565984 (Version 1)
Quarter: 2016Q3

REPORT INFORMATION
  Report Type: Report from Study
  Country: FR (occurrence: FR)
  Receive Date: 20160718
  Receipt Date: 20160718
  Transmission Date: 20161109
  Serious: Yes (Other)
  Sender: FDA-Public Use
  Company Number: FR-B.I. PHARMACEUTICALS,INC./RIDGEFIELD-2015-BI-10477II

PATIENT
  Age: 68 Year
  Sex: Male
  Weight: 73 kg

DRUGS (17)
  1. ATARAX [Concomitant]
     Active Substance: HYDROXYZINE\HYDROXYZINE HYDROCHLORIDE
     Indication: INSOMNIA
  2. GLYCEROL\PARAFFIN [Concomitant]
     Active Substance: GLYCERIN\PARAFFIN
     Indication: PROPHYLAXIS
     Dosage: STRENGTH: 1 APPLICATION; DAILY DOSE: 1 APPLICATION ALD
     Route: 065
     Dates: start: 20140716, end: 20141201
  3. PANTOPRAZOLE [Concomitant]
     Active Substance: PANTOPRAZOLE SODIUM
     Indication: PROPHYLAXIS
     Dosage: 20 MG
     Route: 065
  4. CLOPIDOGREL [Concomitant]
     Active Substance: CLOPIDOGREL BISULFATE
     Indication: ARTERIAL DISORDER
     Dosage: 75 MG
     Route: 065
  5. KARDEGIC [Concomitant]
     Active Substance: ASPIRIN LYSINE
     Indication: ARTERIAL DISORDER
     Dosage: 1 ANZ
     Route: 065
  6. BIBW 2992 [Suspect]
     Active Substance: AFATINIB
     Indication: COLORECTAL CANCER METASTATIC
     Dosage: LAST DOSE ADMINISTERED BEFORE SAE: 20MG; CUMULATIVE DOSE SINCE 1ST ADMINISTRATION: 2110MG
     Route: 048
     Dates: start: 20140716, end: 20141118
  7. TETRALYSAL [Concomitant]
     Active Substance: LYMECYCLINE
     Indication: SKIN TOXICITY
     Dosage: 300 MG
     Route: 065
     Dates: start: 20140910
  8. BISOPROLOL [Concomitant]
     Active Substance: BISOPROLOL
     Indication: ARTERIAL DISORDER
     Dosage: 1.25 MG
     Route: 065
  9. VASELINE PURE [Concomitant]
     Active Substance: PETROLATUM
     Indication: SKIN TOXICITY
     Dosage: STRENGTH: 1 APPLICATION; DAILY DOSE: 1 APPLICATION 2/J
     Route: 065
     Dates: start: 20140813
  10. ATORVASTATINE [Concomitant]
     Active Substance: ATORVASTATIN
     Indication: HYPERCHOLESTEROLAEMIA
     Dosage: 80 MG
     Route: 065
  11. ZOLPIDEM [Concomitant]
     Active Substance: ZOLPIDEM\ZOLPIDEM TARTRATE
     Indication: INSOMNIA
     Dosage: 10 MG
     Route: 065
     Dates: start: 20140730
  12. VITABACT [Concomitant]
     Active Substance: PICLOXYDINE DIHYDROCHLORIDE
     Indication: CONJUNCTIVITIS
     Route: 065
     Dates: start: 20140813
  13. CETUXIMAB [Suspect]
     Active Substance: CETUXIMAB
     Indication: COLORECTAL CANCER METASTATIC
     Dosage: LAST DOSE ADMINISTERED BEFORE SAE: 748MG; CUMULATIVE DOSE SINCE 1ST ADMINISTRATION: 6183MG
     Route: 042
     Dates: start: 20140716, end: 20141105
  14. ATARAX [Concomitant]
     Active Substance: HYDROXYZINE\HYDROXYZINE HYDROCHLORIDE
     Indication: PRURITUS
     Dosage: 25 MG
     Route: 065
     Dates: start: 20140813
  15. PARACETAMOL [Concomitant]
     Active Substance: ACETAMINOPHEN
     Indication: PAIN
     Dosage: DAILY DOSE: 1 G PRN
     Route: 065
  16. PEVARYL [Concomitant]
     Active Substance: ECONAZOLE NITRATE
     Indication: FUNGAL INFECTION
     Dosage: STRENGTH: 1 APPLICATION
     Route: 065
     Dates: start: 20140820
  17. AERIUS [Concomitant]
     Active Substance: DESLORATADINE
     Indication: PRURITUS
     Route: 065
     Dates: start: 20141105, end: 20141201

REACTIONS (2)
  - Hypophosphataemia [Recovered/Resolved with Sequelae]
  - Hypokalaemia [Recovered/Resolved with Sequelae]

NARRATIVE: CASE EVENT DATE: 20141201
